FAERS Safety Report 5390909-7 (Version None)
Quarter: 2007Q3

REPORT INFORMATION
  Report Type: 
  Country: None (occurrence: None)
  Receive Date: 20070716
  Receipt Date: 20070703
  Transmission Date: 20080115
  Serious: Yes (Hospitalization)
  Sender: FDA-Public Use
  Company Number: 2007BI010195

PATIENT
  Age: 68 Year
  Sex: Female

DRUGS (15)
  1. NATALIZUMAB [Suspect]
     Indication: MULTIPLE SCLEROSIS
     Dosage: 300 MG; QM; IV
     Route: 042
  2. NATALIZUMAB [Suspect]
     Indication: MULTIPLE SCLEROSIS
     Dosage: 300 MG; QM; IV
     Route: 042
     Dates: start: 20060711, end: 20070101
  3. AVONEX [Concomitant]
  4. LISINOPRIL [Concomitant]
  5. TOPROL-XL [Concomitant]
  6. FOSAMAX [Concomitant]
  7. ASPIRIN [Concomitant]
  8. PROVIGIL [Concomitant]
  9. VITAMIN D [Concomitant]
  10. B6 [Concomitant]
  11. DEMADEX [Concomitant]
  12. ATIVAN [Concomitant]
  13. NORCO [Concomitant]
  14. SUPPLEMENTS [Concomitant]
  15. TORSEMIDE [Concomitant]

REACTIONS (36)
  - ACTIVATED PARTIAL THROMBOPLASTIN TIME PROLONGED [None]
  - ALANINE AMINOTRANSFERASE INCREASED [None]
  - AMNESIA [None]
  - ASPARTATE AMINOTRANSFERASE INCREASED [None]
  - ASTHENIA [None]
  - BLOOD GLUCOSE INCREASED [None]
  - BLOOD LACTATE DEHYDROGENASE INCREASED [None]
  - BONE MARROW FAILURE [None]
  - CARDIAC FAILURE CONGESTIVE [None]
  - CONDITION AGGRAVATED [None]
  - CONFUSIONAL STATE [None]
  - COOMBS POSITIVE HAEMOLYTIC ANAEMIA [None]
  - EOSINOPHILIA [None]
  - FACTOR XI DEFICIENCY [None]
  - FALL [None]
  - GAIT DISTURBANCE [None]
  - HAEMATOCHEZIA [None]
  - HAEMATURIA [None]
  - HEPATIC ENZYME INCREASED [None]
  - HYPOTHERMIA [None]
  - HYPOVOLAEMIA [None]
  - INFECTION [None]
  - INTESTINAL FUNCTIONAL DISORDER [None]
  - LETHARGY [None]
  - MULTIPLE SCLEROSIS RELAPSE [None]
  - NEUTROPHIL PELGER-HUET ANOMALY PRESENT [None]
  - PCO2 DECREASED [None]
  - PLEURAL EFFUSION [None]
  - PNEUMONIA [None]
  - PNEUMONITIS [None]
  - PO2 INCREASED [None]
  - POLYCHROMASIA [None]
  - SKIN LACERATION [None]
  - SPEECH DISORDER [None]
  - THROMBOTIC THROMBOCYTOPENIC PURPURA [None]
  - URINARY TRACT INFECTION [None]
